FAERS Safety Report 10084818 (Version 1)
Quarter: 2014Q2

REPORT INFORMATION
  Report Type: Spontaneous
  Country: FR (occurrence: FR)
  Receive Date: 20140417
  Receipt Date: 20140417
  Transmission Date: 20141212
  Serious: Yes (Hospitalization, Other)
  Sender: FDA-Public Use
  Company Number: FR-ELI_LILLY_AND_COMPANY-FR201404003741

PATIENT
  Age: 75 Year
  Sex: Female

DRUGS (1)
  1. OPTRUMA [Suspect]
     Indication: OSTEOPOROTIC FRACTURE
     Dosage: 60 MG, QD
     Route: 048
     Dates: start: 2006, end: 20140225

REACTIONS (9)
  - Loss of consciousness [Not Recovered/Not Resolved]
  - Bundle branch block right [Not Recovered/Not Resolved]
  - Pulmonary embolism [Not Recovered/Not Resolved]
  - Deep vein thrombosis [Not Recovered/Not Resolved]
  - Malaise [Not Recovered/Not Resolved]
  - Dizziness [Not Recovered/Not Resolved]
  - Fatigue [Not Recovered/Not Resolved]
  - Urinary incontinence [Not Recovered/Not Resolved]
  - Faecal incontinence [Not Recovered/Not Resolved]
